FAERS Safety Report 19454368 (Version 2)
Quarter: 2021Q3

REPORT INFORMATION
  Report Type: Spontaneous
  Country: US (occurrence: US)
  Receive Date: 20210623
  Receipt Date: 20210709
  Transmission Date: 20211014
  Serious: No
  Sender: FDA-Public Use
  Company Number: US-CELGENEUS-USA-20210604178

PATIENT
  Sex: Male

DRUGS (3)
  1. VIDAZA [Suspect]
     Active Substance: AZACITIDINE
     Indication: ACUTE MYELOMONOCYTIC LEUKAEMIA
     Route: 041
     Dates: start: 20210409
  2. GILTERITINIB [Suspect]
     Active Substance: GILTERITINIB
     Indication: ACUTE MYELOMONOCYTIC LEUKAEMIA
     Dosage: 120 MILLIGRAM
     Route: 048
     Dates: start: 20210409, end: 202104
  3. VENETOCLAX. [Suspect]
     Active Substance: VENETOCLAX
     Indication: ACUTE MYELOMONOCYTIC LEUKAEMIA
     Route: 065
     Dates: start: 20210409

REACTIONS (4)
  - Platelet count decreased [Unknown]
  - Urticaria [Unknown]
  - Protein total increased [Unknown]
  - Blast cell count decreased [Unknown]

NARRATIVE: CASE EVENT DATE: 2021
